FAERS Safety Report 13998647 (Version 1)
Quarter: 2017Q3

REPORT INFORMATION
  Report Type: Spontaneous
  Country: US (occurrence: US)
  Receive Date: 20170921
  Receipt Date: 20170921
  Transmission Date: 20171128
  Serious: Yes (Hospitalization)
  Sender: FDA-Public Use
  Company Number: US-BEH-2017083655

PATIENT
  Sex: Female
  Weight: 122.45 kg

DRUGS (30)
  1. DIFLUCAN [Concomitant]
     Active Substance: FLUCONAZOLE
  2. CYMBALTA [Concomitant]
     Active Substance: DULOXETINE HYDROCHLORIDE
  3. TRILIPIX [Concomitant]
     Active Substance: FENOFIBRIC ACID
  4. PROTONIX [Concomitant]
     Active Substance: PANTOPRAZOLE SODIUM
  5. ADVAIR HFA [Concomitant]
     Active Substance: FLUTICASONE PROPIONATE\SALMETEROL XINAFOATE
  6. RELPAX [Concomitant]
     Active Substance: ELETRIPTAN HYDROBROMIDE
  7. XOPENEX [Concomitant]
     Active Substance: LEVALBUTEROL HYDROCHLORIDE
  8. LOMOTIL [Concomitant]
     Active Substance: ATROPINE SULFATE\DIPHENOXYLATE HYDROCHLORIDE
  9. NYSTATIN. [Concomitant]
     Active Substance: NYSTATIN
  10. ZOFRAN [Concomitant]
     Active Substance: ONDANSETRON HYDROCHLORIDE
  11. LYRICA [Concomitant]
     Active Substance: PREGABALIN
  12. ALVESCO [Concomitant]
     Active Substance: CICLESONIDE
  13. TRENTAL [Concomitant]
     Active Substance: PENTOXIFYLLINE
  14. HIZENTRA [Suspect]
     Active Substance: HUMAN IMMUNOGLOBULIN G
     Indication: SELECTIVE IGG SUBCLASS DEFICIENCY
     Dosage: 10 G, QW
     Route: 058
     Dates: start: 20100928
  15. ATACAND [Concomitant]
     Active Substance: CANDESARTAN CILEXETIL
  16. FEXOFENADINE [Concomitant]
     Active Substance: FEXOFENADINE\FEXOFENADINE HYDROCHLORIDE
  17. BUTALBITAL/APAP [Concomitant]
  18. PREDNISONE. [Concomitant]
     Active Substance: PREDNISONE
  19. FOLIC ACID. [Concomitant]
     Active Substance: FOLIC ACID
  20. MACROBID [Concomitant]
     Active Substance: NITROFURANTOIN\NITROFURANTOIN MONOHYDRATE
  21. LEVAQUIN [Concomitant]
     Active Substance: LEVOFLOXACIN
  22. SYNTHROID [Concomitant]
     Active Substance: LEVOTHYROXINE SODIUM
  23. COLESTID [Concomitant]
     Active Substance: COLESTIPOL HYDROCHLORIDE
  24. HIZENTRA [Suspect]
     Active Substance: HUMAN IMMUNOGLOBULIN G
     Dosage: UNK
     Route: 058
  25. METFORMIN [Concomitant]
     Active Substance: METFORMIN HYDROCHLORIDE
  26. SULINDAC. [Concomitant]
     Active Substance: SULINDAC
  27. VITAMIN D                          /00107901/ [Concomitant]
     Active Substance: ERGOCALCIFEROL
  28. ALBUTEROL                          /00139501/ [Concomitant]
     Active Substance: ALBUTEROL
  29. HIZENTRA [Suspect]
     Active Substance: HUMAN IMMUNOGLOBULIN G
     Dosage: UNK
     Route: 058
  30. FLEXERIL [Concomitant]
     Active Substance: CYCLOBENZAPRINE HYDROCHLORIDE

REACTIONS (1)
  - Pneumonia [Unknown]
